FAERS Safety Report 17576036 (Version 1)
Quarter: 2020Q1

REPORT INFORMATION
  Report Type: Spontaneous
  Country: US (occurrence: US)
  Receive Date: 20200318
  Receipt Date: 20200318
  Transmission Date: 20200409
  Serious: Yes (Hospitalization)
  Sender: FDA-Public Use
  Company Number: None

PATIENT
  Age: 61 Year
  Sex: Male

DRUGS (6)
  1. HYDROCO/APAP [Concomitant]
     Active Substance: ACETAMINOPHEN\HYDROCODONE
  2. ALPRAZOLAM. [Concomitant]
     Active Substance: ALPRAZOLAM
  3. NYSTOP [Concomitant]
     Active Substance: NYSTATIN
  4. ENOXAPARIN [Concomitant]
     Active Substance: ENOXAPARIN
  5. ENBREL [Suspect]
     Active Substance: ETANERCEPT
     Indication: RHEUMATOID ARTHRITIS
     Dosage: PEN
     Route: 058
  6. DOXCYCL HYC [Concomitant]

REACTIONS (2)
  - Hip arthroplasty [None]
  - Bladder operation [None]

NARRATIVE: CASE EVENT DATE: 20191120
